FAERS Safety Report 5478513-3 (Version None)
Quarter: 2007Q4

REPORT INFORMATION
  Report Type: 
  Country: None (occurrence: None)
  Receive Date: 20071005
  Receipt Date: 20070927
  Transmission Date: 20080405
  Serious: Yes (Hospitalization, Other)
  Sender: FDA-Public Use
  Company Number: US-ROCHE-503108

PATIENT
  Age: 21 Year
  Sex: Female
  Weight: 50.3 kg

DRUGS (3)
  1. ACCUTANE [Suspect]
     Indication: ACNE
     Route: 048
     Dates: start: 19900301, end: 19900925
  2. PRILOSEC [Concomitant]
  3. DEMULEN 1/35-28 [Concomitant]
     Dates: start: 19900101

REACTIONS (15)
  - CROHN'S DISEASE [None]
  - DEHYDRATION [None]
  - DEPRESSION [None]
  - DUODENAL STENOSIS [None]
  - DUODENITIS [None]
  - EMOTIONAL DISTRESS [None]
  - ENTERITIS [None]
  - HEPATIC ENZYME INCREASED [None]
  - ILEITIS [None]
  - INFLAMMATORY BOWEL DISEASE [None]
  - INTESTINAL OBSTRUCTION [None]
  - MALABSORPTION [None]
  - MICROCYTIC ANAEMIA [None]
  - OESOPHAGITIS [None]
  - PANCREATITIS [None]
